FAERS Safety Report 4374297-0 (Version None)
Quarter: 2004Q2

REPORT INFORMATION
  Report Type: 
  Country: None (occurrence: None)
  Receive Date: 20040603
  Receipt Date: 20040519
  Transmission Date: 20050107
  Serious: Yes (Hospitalization)
  Sender: FDA-Public Use
  Company Number: GBS040514968

PATIENT
  Age: 47 Year
  Sex: Female

DRUGS (6)
  1. VANCOMYCIN [Suspect]
     Indication: INFECTION
     Dosage: 1 G/2 DAY
     Dates: start: 20040504, end: 20040504
  2. TEMAZEPAM [Concomitant]
  3. TRAMADOL HCL [Concomitant]
  4. OMEPRAZOLE [Concomitant]
  5. SERETIDE [Concomitant]
  6. SPASMONAL (ALVERINE CITRATE) [Concomitant]

REACTIONS (4)
  - CHEST DISCOMFORT [None]
  - CONJUNCTIVAL OEDEMA [None]
  - OROPHARYNGEAL SWELLING [None]
  - RED MAN SYNDROME [None]
